FAERS Safety Report 20119619 (Version 1)
Quarter: 2021Q4

REPORT INFORMATION
  Report Type: Report from Study
  Country: CA (occurrence: CA)
  Receive Date: 20211126
  Receipt Date: 20211126
  Transmission Date: 20220303
  Serious: Yes (Other)
  Sender: FDA-Public Use
  Company Number: CA-NOVARTISPH-PHHY2018CA018759

PATIENT
  Age: 43 Year
  Sex: Female

DRUGS (4)
  1. COSENTYX [Suspect]
     Active Substance: SECUKINUMAB
     Indication: Psoriasis
     Dosage: 300 MG, QW
     Route: 058
     Dates: start: 20180531
  2. METHOTREXATE [Suspect]
     Active Substance: METHOTREXATE
     Indication: Product used for unknown indication
     Dosage: UNK
     Route: 065
  3. OTEZLA [Concomitant]
     Active Substance: APREMILAST
     Indication: Product used for unknown indication
     Route: 065
  4. PROTOPIC [Concomitant]
     Active Substance: TACROLIMUS
     Indication: Product used for unknown indication
     Route: 065

REACTIONS (9)
  - Crohn^s disease [Unknown]
  - Gastrointestinal disorder [Unknown]
  - Feeling abnormal [Unknown]
  - Nausea [Unknown]
  - Headache [Unknown]
  - Injection site haemorrhage [Unknown]
  - Pruritus [Unknown]
  - Scratch [Unknown]
  - Stress [Unknown]

NARRATIVE: CASE EVENT DATE: 20180601
